FAERS Safety Report 5028228-0 (Version None)
Quarter: 2006Q2

REPORT INFORMATION
  Report Type: 
  Country: None (occurrence: None)
  Receive Date: 20060609
  Receipt Date: 20060202
  Transmission Date: 20061013
  Serious: Yes (Hospitalization, Disabling)
  Sender: FDA-Public Use
  Company Number: 2006RL000037

PATIENT
  Age: 88 Year
  Sex: Male
  Weight: 80.7403 kg

DRUGS (8)
  1. RYTHMOL [Suspect]
     Indication: ATRIAL FIBRILLATION
     Dosage: 225 MG; BID; PO
     Route: 048
     Dates: start: 20051013, end: 20060130
  2. PRAVACHOL [Concomitant]
  3. LOTREL [Concomitant]
  4. ASPIRIN [Concomitant]
  5. DETROL [Concomitant]
  6. STADOL [Concomitant]
  7. SOTALOL HCL [Concomitant]
  8. NORVASC [Concomitant]

REACTIONS (14)
  - ANION GAP DECREASED [None]
  - BLOOD SODIUM DECREASED [None]
  - CONTUSION [None]
  - DRUG INEFFECTIVE [None]
  - FAILURE OF IMPLANT [None]
  - FALL [None]
  - FEMUR FRACTURE [None]
  - HAEMATOCRIT DECREASED [None]
  - HAEMOGLOBIN DECREASED [None]
  - INTERNATIONAL NORMALISED RATIO INCREASED [None]
  - LYMPHOCYTE COUNT DECREASED [None]
  - MONOCYTE COUNT INCREASED [None]
  - PAIN IN EXTREMITY [None]
  - PROTHROMBIN TIME PROLONGED [None]
